FAERS Safety Report 9998341 (Version 1)
Quarter: 2014Q1

REPORT INFORMATION
  Report Type: Spontaneous
  Country: US (occurrence: US)
  Receive Date: 20140312
  Receipt Date: 20140312
  Transmission Date: 20141002
  Serious: Yes (Other)
  Sender: FDA-Public Use
  Company Number: US-JNJCP-30000136597

PATIENT
  Age: 70 Year
  Sex: Male

DRUGS (9)
  1. ROC RETINOL CORREXION DEEP WRINKLE DAILY MOISTURIZER SPF30 [Suspect]
     Indication: SKIN WRINKLING
     Dosage: PER PRODUCT INSTRUCTIONS
     Route: 061
     Dates: end: 20121030
  2. NO DRUG NAME [Concomitant]
  3. NO DRUG NAME [Concomitant]
  4. NO DRUG NAME [Concomitant]
  5. NO DRUG NAME [Concomitant]
  6. NO DRUG NAME [Concomitant]
  7. NO DRUG NAME [Concomitant]
  8. NO DRUG NAME [Concomitant]
  9. NO DRUG NAME [Concomitant]

REACTIONS (4)
  - Skin wrinkling [Not Recovered/Not Resolved]
  - Drug ineffective [Unknown]
  - Cataract [Unknown]
  - Vitreous floaters [Unknown]
